FAERS Safety Report 9995226 (Version 1)
Quarter: 2014Q1

REPORT INFORMATION
  Report Type: Spontaneous
  Country: US (occurrence: None)
  Receive Date: 20140306
  Receipt Date: 20140306
  Transmission Date: 20141002
  Serious: Yes (Hospitalization)
  Sender: FDA-Public Use
  Company Number: IMP_07489_2014

PATIENT
  Age: 64 Year
  Sex: Female

DRUGS (5)
  1. ALPRAZOLAM [Suspect]
     Indication: NEUROLOGICAL SYMPTOM
     Dosage: DF
  2. TICLOPIDINE [Suspect]
     Indication: NEUROLOGICAL SYMPTOM
     Dosage: DF
  3. PIRACETAM [Suspect]
     Indication: NEUROLOGICAL SYMPTOM
     Dosage: DF
  4. VINCAMINE [Suspect]
     Indication: NEUROLOGICAL SYMPTOM
     Dosage: DF
  5. ENALAPRIL [Concomitant]

REACTIONS (1)
  - Drug reaction with eosinophilia and systemic symptoms [None]
